FAERS Safety Report 7623025-1 (Version None)
Quarter: 2011Q3

REPORT INFORMATION
  Report Type: 
  Country: None (occurrence: None)
  Receive Date: 20110720
  Receipt Date: 20110718
  Transmission Date: 20111222
  Serious: Yes (Other)
  Sender: FDA-Public Use
  Company Number: GB-CELGENEUS-167-21880-11042690

PATIENT
  Sex: Male

DRUGS (5)
  1. SYMBICORT [Concomitant]
     Route: 055
     Dates: start: 20090109
  2. TIOTROPIUM [Concomitant]
     Dosage: 1 PUFF
     Route: 055
     Dates: start: 20090101
  3. REVLIMID [Suspect]
     Indication: MULTIPLE MYELOMA
     Route: 048
     Dates: start: 20050401, end: 20090801
  4. OXYCONTIN MR [Concomitant]
     Indication: BACK PAIN
     Dosage: 40 MILLIGRAM
     Route: 048
     Dates: start: 20100820
  5. OXYCODONE HCL [Concomitant]
     Indication: BACK PAIN
     Dates: start: 20100820

REACTIONS (1)
  - SQUAMOUS CELL CARCINOMA [None]
